FAERS Safety Report 24660118 (Version 1)
Quarter: 2024Q4

REPORT INFORMATION
  Report Type: Report from Study
  Country: US (occurrence: US)
  Receive Date: 20241125
  Receipt Date: 20241125
  Transmission Date: 20250115
  Serious: Yes (Hospitalization)
  Sender: DUCHESNAY
  Company Number: US-MEDUNIK-2024US000477

PATIENT

DRUGS (1)
  1. SODIUM PHENYLBUTYRATE [Suspect]
     Active Substance: SODIUM PHENYLBUTYRATE
     Indication: Urea cycle disorder
     Dosage: 3.5 GRAM, TID
     Route: 048
     Dates: start: 202408

REACTIONS (2)
  - Illness [Unknown]
  - Product use issue [Not Recovered/Not Resolved]

NARRATIVE: CASE EVENT DATE: 20240901
